FAERS Safety Report 25503248 (Version 3)
Quarter: 2025Q3

REPORT INFORMATION
  Report Type: Spontaneous
  Country: EU (occurrence: EU)
  Receive Date: 20250702
  Receipt Date: 20250730
  Transmission Date: 20251020
  Serious: Yes (Hospitalization, Other)
  Sender: AUROBINDO
  Company Number: EU-BRISTOL-MYERS SQUIBB COMPANY-2025-080078

PATIENT
  Age: 76 Year
  Sex: Male

DRUGS (2)
  1. APIXABAN [Suspect]
     Active Substance: APIXABAN
     Indication: Coagulopathy
     Route: 065
  2. APIXABAN [Suspect]
     Active Substance: APIXABAN
     Indication: Cerebrovascular accident prophylaxis

REACTIONS (12)
  - Renal impairment [Unknown]
  - Asthenia [Unknown]
  - Leukocytosis [Unknown]
  - Abdominal pain [Unknown]
  - Anticoagulation drug level above therapeutic [Unknown]
  - Vomiting [Unknown]
  - Haemoperitoneum [Unknown]
  - Renal haemorrhage [Unknown]
  - Renal haematoma [Unknown]
  - Grey Turner^s sign [Unknown]
  - Pain [Unknown]
  - Haemoglobin decreased [Unknown]
